FAERS Safety Report 14859587 (Version 1)
Quarter: 2018Q2

REPORT INFORMATION
  Report Type: Spontaneous
  Country: US (occurrence: US)
  Receive Date: 20180508
  Receipt Date: 20180508
  Transmission Date: 20180711
  Serious: No
  Sender: FDA-Public Use
  Company Number: US-PFIZER INC-2017420881

PATIENT
  Sex: Female

DRUGS (3)
  1. PARAPLATIN [Concomitant]
     Active Substance: CARBOPLATIN
     Dosage: UNK
  2. DOCETAXEL. [Suspect]
     Active Substance: DOCETAXEL
     Indication: BREAST CANCER
     Dosage: 75 MG, EVERY 3 WEEKS (6 CYCLES)
     Dates: start: 20140619, end: 20141016
  3. TAXOTERE [Suspect]
     Active Substance: DOCETAXEL
     Indication: BREAST CANCER
     Dosage: 75 MG, EVERY 3 WEEKS (6 CYCLES)
     Dates: start: 20140619, end: 20141016

REACTIONS (5)
  - Hair texture abnormal [Recovering/Resolving]
  - Hair disorder [Recovering/Resolving]
  - Alopecia [Recovering/Resolving]
  - Madarosis [Recovering/Resolving]
  - Hair colour changes [Recovering/Resolving]
